FAERS Safety Report 9385192 (Version 1)
Quarter: 2013Q2

REPORT INFORMATION
  Report Type: Spontaneous
  Country: US (occurrence: None)
  Receive Date: 20130628
  Receipt Date: 20130628
  Transmission Date: 20140414
  Serious: Yes (Life-Threatening, Hospitalization)
  Sender: FDA-Public Use
  Company Number: 2013P1009643

PATIENT
  Age: 50 Year
  Sex: Female

DRUGS (2)
  1. INFUMORPH [Suspect]
     Indication: BACK PAIN
     Route: 037
  2. INFUMORPH [Suspect]
     Indication: PAIN
     Route: 037

REACTIONS (12)
  - Drug withdrawal syndrome [None]
  - Drug effect decreased [None]
  - Convulsion [None]
  - Pain [None]
  - Lethargy [None]
  - Device infusion issue [None]
  - Overdose [None]
  - Speech disorder [None]
  - Memory impairment [None]
  - Abasia [None]
  - Activities of daily living impaired [None]
  - Medical device complication [None]
